FAERS Safety Report 11431515 (Version 2)
Quarter: 2015Q3

REPORT INFORMATION
  Report Type: Report from Study
  Country: US (occurrence: NO)
  Receive Date: 20150828
  Receipt Date: 20150828
  Transmission Date: 20151125
  Serious: Yes (Hospitalization, Other)
  Sender: FDA-Public Use
  Company Number: NO-FRI-1000078207

PATIENT
  Age: 70 Year
  Sex: Male
  Weight: 76 kg

DRUGS (4)
  1. SHORT-ACTING BETA2 AGONIST (SABA) [Concomitant]
  2. LABA(LONG-ACTING BETA2 AGONIST)/ICS (INHALED CORTICOSTEROID) [Concomitant]
  3. ROFLUMILAST [Suspect]
     Active Substance: ROFLUMILAST
     Indication: CHRONIC OBSTRUCTIVE PULMONARY DISEASE
     Dosage: 500 MCG
     Route: 048
     Dates: start: 20140318, end: 20140429
  4. SHORT-ACTING ANTICHOLINERGIC (SAMA) [Concomitant]

REACTIONS (2)
  - Weight decreased [Recovering/Resolving]
  - Acute myocardial infarction [Recovered/Resolved]

NARRATIVE: CASE EVENT DATE: 20140429
